FAERS Safety Report 19732100 (Version 2)
Quarter: 2021Q3

REPORT INFORMATION
  Report Type: Spontaneous
  Country: US (occurrence: US)
  Receive Date: 20210820
  Receipt Date: 20210910
  Transmission Date: 20211014
  Serious: Yes (Hospitalization, Other)
  Sender: FDA-Public Use
  Company Number: US-009507513-2108USA003046

PATIENT
  Age: 40 Year
  Sex: Male
  Weight: 159.6 kg

DRUGS (15)
  1. SOMATROPIN. [Suspect]
     Active Substance: SOMATROPIN
     Dosage: 0.2 MG, DAY
     Dates: start: 20210602
  2. PROZAC [Concomitant]
     Active Substance: FLUOXETINE HYDROCHLORIDE
     Dosage: UNK
     Route: 048
     Dates: start: 2019
  3. SOMATROPIN. [Suspect]
     Active Substance: SOMATROPIN
     Dosage: 0.3 MG, DAY (INCREASED)
     Dates: start: 20210519
  4. PRINIVIL [Suspect]
     Active Substance: LISINOPRIL
     Indication: HYPERTENSION
     Dosage: 10 MG, DAILY
     Route: 048
     Dates: start: 2020, end: 20210706
  5. SOMATROPIN. [Suspect]
     Active Substance: SOMATROPIN
     Dosage: 0.2 MG, DAY
     Dates: start: 20210331
  6. SOMATROPIN. [Suspect]
     Active Substance: SOMATROPIN
     Dosage: 0.5 MG, DAY (INCREASED)
     Dates: start: 20210629
  7. FLUOXETINE [Concomitant]
     Active Substance: FLUOXETINE HYDROCHLORIDE
     Dosage: UNK
     Route: 048
     Dates: start: 2019
  8. PROPANOLOL HYDROCHLORIDE [Suspect]
     Active Substance: PROPRANOLOL HYDROCHLORIDE
     Indication: HYPERTENSION
     Dosage: 10 MG, TWICE DAILY
     Route: 048
     Dates: start: 2020, end: 20210706
  9. SOMATROPIN. [Suspect]
     Active Substance: SOMATROPIN
     Indication: BLOOD GROWTH HORMONE
     Dosage: 0.2 MG, DAY
     Dates: start: 20210311
  10. SOMATROPIN. [Suspect]
     Active Substance: SOMATROPIN
     Dosage: 0.4 MG, DAY (INCREASED)
     Dates: start: 20210614
  11. HYDROCHLOROTHIAZIDE. [Suspect]
     Active Substance: HYDROCHLOROTHIAZIDE
     Indication: HYPERTENSION
     Dosage: 25 MG, DAILY
     Route: 048
     Dates: start: 2020, end: 20210706
  12. SOMATROPIN. [Suspect]
     Active Substance: SOMATROPIN
     Dosage: 0.5 MG, DAY
     Dates: start: 20210705
  13. BUPROPION. [Concomitant]
     Active Substance: BUPROPION
     Dosage: UNK
     Route: 048
     Dates: start: 2019
  14. WELLBUTRIN [Concomitant]
     Active Substance: BUPROPION HYDROCHLORIDE
     Dosage: UNK
     Route: 048
     Dates: start: 2019
  15. MESALAMINE. [Concomitant]
     Active Substance: MESALAMINE
     Dosage: UNK
     Route: 048
     Dates: start: 2021

REACTIONS (2)
  - Syncope [Recovering/Resolving]
  - Ankle fracture [Recovering/Resolving]

NARRATIVE: CASE EVENT DATE: 20210706
